FAERS Safety Report 7933551-3 (Version None)
Quarter: 2011Q4

REPORT INFORMATION
  Report Type: 
  Country: None (occurrence: None)
  Receive Date: 20111122
  Receipt Date: 20111117
  Transmission Date: 20120403
  Serious: Yes (Other)
  Sender: FDA-Public Use
  Company Number: FR-SANOFI-AVENTIS-2011SA075908

PATIENT
  Age: 83 Year
  Sex: Male

DRUGS (1)
  1. MULTAQ [Suspect]
     Route: 048
     Dates: start: 20100101, end: 20110101

REACTIONS (2)
  - HEPATIC NEOPLASM [None]
  - LIVER FUNCTION TEST ABNORMAL [None]
